FAERS Safety Report 8086330 (Version 4)
Quarter: 2013Q1

REPORT INFORMATION
  Report Type: Spontaneous
  Country: JP (occurrence: JP)
  Receive Date: 20110811
  Receipt Date: 20130319
  Transmission Date: 20140127
  Serious: Yes (Other)
  Sender: FDA-Public Use
  Company Number: JP-EISAI INC-E2020-09546-SPO-JP

PATIENT
  Age: 85 Year
  Sex: Female
  Weight: 38 kg

DRUGS (9)
  1. ARICEPT [Suspect]
     Indication: DEMENTIA
     Route: 048
     Dates: start: 20110721, end: 20110722
  2. THYRADIN S [Concomitant]
     Indication: HYPOTHYROIDISM
     Route: 048
  3. PARIET [Concomitant]
     Route: 048
  4. SENNARIDE [Concomitant]
     Route: 048
  5. DIOVAN [Concomitant]
     Route: 048
  6. NAUZELIN [Concomitant]
     Route: 048
  7. FRANDOL S [Concomitant]
  8. SULPIRIDE [Concomitant]
     Route: 048
  9. SOLDEM 3AG [Concomitant]
     Route: 041

REACTIONS (1)
  - Ventricular tachycardia [Recovered/Resolved]
